FAERS Safety Report 5068511-6 (Version None)
Quarter: 2006Q3

REPORT INFORMATION
  Report Type: 
  Country: None (occurrence: None)
  Receive Date: 20060802
  Receipt Date: 20051031
  Transmission Date: 20061208
  Serious: No
  Sender: FDA-Public Use
  Company Number: US-BRISTOL-MYERS SQUIBB COMPANY-13162540

PATIENT
  Sex: Female

DRUGS (1)
  1. COUMADIN [Suspect]
     Indication: PALPITATIONS
     Dosage: THERAPY WAS STARTED THREE WEEKS AGO
     Dates: start: 20051001

REACTIONS (3)
  - ALOPECIA [None]
  - DIARRHOEA [None]
  - WEIGHT INCREASED [None]
